FAERS Safety Report 7201271-9 (Version None)
Quarter: 2010Q4

REPORT INFORMATION
  Report Type: 
  Country: None (occurrence: None)
  Receive Date: 20101227
  Receipt Date: 20101227
  Transmission Date: 20110411
  Serious: Yes (Death, Hospitalization)
  Sender: FDA-Public Use
  Company Number: None

PATIENT
  Age: 82 Year
  Sex: Male
  Weight: 61.2356 kg

DRUGS (1)
  1. ARICEPT [Suspect]
     Indication: DEMENTIA ALZHEIMER'S TYPE
     Dosage: ONE EACH DAY
     Dates: start: 20100801, end: 20101026

REACTIONS (12)
  - DELUSION [None]
  - DIZZINESS [None]
  - FATIGUE [None]
  - HAEMORRHAGE [None]
  - HOSTILITY [None]
  - NASOPHARYNGITIS [None]
  - NAUSEA [None]
  - ORAL HERPES [None]
  - PNEUMONIA [None]
  - TOOTHACHE [None]
  - URINARY RETENTION [None]
  - WEIGHT DECREASED [None]
